FAERS Safety Report 6082611-3 (Version None)
Quarter: 2009Q1

REPORT INFORMATION
  Report Type: 
  Country: None (occurrence: None)
  Receive Date: 20090204
  Receipt Date: 20080219
  Transmission Date: 20090719
  Serious: Yes (Hospitalization)
  Sender: FDA-Public Use
  Company Number: 272387

PATIENT
  Age: 32 Year
  Sex: Male
  Weight: 72.6 kg

DRUGS (4)
  1. NOVOLOG MIX 70/30 [Suspect]
     Indication: TYPE 1 DIABETES MELLITUS
     Dosage: SUBCUTANEOUS
     Route: 058
     Dates: start: 20080101
  2. LIPITOR [Concomitant]
  3. ABILIFY [Concomitant]
  4. DEPAKOTE [Concomitant]

REACTIONS (1)
  - BLOOD GLUCOSE INCREASED [None]
